FAERS Safety Report 18514532 (Version 1)
Quarter: 2020Q4

REPORT INFORMATION
  Report Type: Spontaneous
  Country: FR (occurrence: FR)
  Receive Date: 20201118
  Receipt Date: 20201118
  Transmission Date: 20210114
  Serious: Yes (Other)
  Sender: FDA-Public Use
  Company Number: FR-CELLTRION INC.-2020FR031612

PATIENT

DRUGS (1)
  1. INFLIXIMAB (UNKNOWN) [Suspect]
     Active Substance: INFLIXIMAB
     Indication: CHRONIC GRANULOMATOUS DISEASE
     Dosage: UNK
     Route: 042

REACTIONS (2)
  - Off label use [Unknown]
  - Abdominal abscess [Unknown]
